FAERS Safety Report 16164547 (Version 4)
Quarter: 2019Q3

REPORT INFORMATION
  Report Type: Spontaneous
  Country: IL (occurrence: IL)
  Receive Date: 20190405
  Receipt Date: 20190710
  Transmission Date: 20191004
  Serious: Yes (Hospitalization, Other)
  Sender: FDA-Public Use
  Company Number: IL-ARRAY-2019-05372

PATIENT

DRUGS (13)
  1. VECTIBIX [Concomitant]
     Active Substance: PANITUMUMAB
     Dosage: 300 MG
     Route: 042
     Dates: start: 20181021, end: 20181021
  2. VECTIBIX [Concomitant]
     Active Substance: PANITUMUMAB
     Dosage: 300 MG
     Route: 042
     Dates: start: 20190514, end: 20190514
  3. MEKTOVI [Suspect]
     Active Substance: BINIMETINIB
     Indication: COLON CANCER STAGE IV
     Dosage: 90 MG, QD
  4. VECTIBIX [Concomitant]
     Active Substance: PANITUMUMAB
     Dosage: 300 MG
     Route: 042
     Dates: start: 20180812, end: 20180812
  5. VECTIBIX [Concomitant]
     Active Substance: PANITUMUMAB
     Dosage: 300 MG
     Route: 042
     Dates: start: 20190318, end: 20190318
  6. VECTIBIX [Concomitant]
     Active Substance: PANITUMUMAB
     Dosage: 300 MG
     Route: 042
     Dates: start: 20180909, end: 20180909
  7. VECTIBIX [Concomitant]
     Active Substance: PANITUMUMAB
     Dosage: 300 MG
     Route: 042
     Dates: start: 20190430, end: 20190430
  8. VECTIBIX [Concomitant]
     Active Substance: PANITUMUMAB
     Dosage: 350 MG
     Route: 042
     Dates: start: 20180624, end: 20180624
  9. BRAFTOVI [Suspect]
     Active Substance: ENCORAFENIB
     Indication: COLON CANCER STAGE IV
     Dosage: 300 MG, QD
  10. VECTIBIX [Concomitant]
     Active Substance: PANITUMUMAB
     Dosage: 350 MG
     Route: 042
     Dates: start: 20180709, end: 20180709
  11. VECTIBIX [Concomitant]
     Active Substance: PANITUMUMAB
     Indication: COLON CANCER METASTATIC
     Dosage: 350 MG
     Route: 042
     Dates: start: 20180430, end: 20180430
  12. VECTIBIX [Concomitant]
     Active Substance: PANITUMUMAB
     Dosage: 300 MG
     Route: 042
     Dates: start: 20180723, end: 20180723
  13. VECTIBIX [Concomitant]
     Active Substance: PANITUMUMAB
     Dosage: 300 MG
     Route: 042
     Dates: start: 20181113, end: 20181113

REACTIONS (4)
  - Product use in unapproved indication [Unknown]
  - Diarrhoea [Unknown]
  - Laboratory test abnormal [Unknown]
  - Intestinal obstruction [Unknown]

NARRATIVE: CASE EVENT DATE: 201901
